FAERS Safety Report 4636604-0 (Version None)
Quarter: 2005Q2

REPORT INFORMATION
  Report Type: 
  Country: None (occurrence: None)
  Receive Date: 20050415
  Receipt Date: 20050309
  Transmission Date: 20051028
  Serious: Yes (Hospitalization)
  Sender: FDA-Public Use
  Company Number: PHRM2005FR01047

PATIENT
  Age: 50 Year
  Sex: Male

DRUGS (2)
  1. ZOMETA [Suspect]
     Indication: LUNG NEOPLASM MALIGNANT
     Dosage: 2 INJ OVER 2 MONTHS
     Route: 042
  2. CORTICOSTEROID NOS [Suspect]
     Dosage: 80 MG DAILY
     Route: 048

REACTIONS (2)
  - DELUSION [None]
  - EXCITABILITY [None]
